FAERS Safety Report 24528237 (Version 1)
Quarter: 2024Q4

REPORT INFORMATION
  Report Type: Spontaneous
  Country: US (occurrence: US)
  Receive Date: 20241021
  Receipt Date: 20241021
  Transmission Date: 20250114
  Serious: No
  Sender: ALEXION PHARMACEUTICALS
  Company Number: US-AstraZeneca-2024-294888

PATIENT

DRUGS (1)
  1. FARXIGA [Suspect]
     Active Substance: DAPAGLIFLOZIN PROPANEDIOL

REACTIONS (2)
  - Blood glucose increased [Unknown]
  - Product use issue [Unknown]
